FAERS Safety Report 21772888 (Version 1)
Quarter: 2022Q4

REPORT INFORMATION
  Report Type: Spontaneous
  Country: FR (occurrence: FR)
  Receive Date: 20221223
  Receipt Date: 20221223
  Transmission Date: 20230113
  Serious: Yes (Hospitalization)
  Sender: FDA-Public Use
  Company Number: None

PATIENT
  Age: 50 Year
  Sex: Male
  Weight: 88 kg

DRUGS (8)
  1. OLANZAPINE [Suspect]
     Active Substance: OLANZAPINE
     Indication: Sedative therapy
     Dosage: UNIT DOSE: 10 MG , FREQUENCY TIME : 1 DAY, DURATION : 2 DAYS
     Dates: start: 20221128, end: 20221130
  2. OLANZAPINE [Suspect]
     Active Substance: OLANZAPINE
     Dosage: UNIT DOSE: 5 MG , FREQUENCY TIME : 1 DAY, DURATION : 8 DAYS
     Dates: start: 20221122, end: 20221127
  3. MEKINIST [Suspect]
     Active Substance: TRAMETINIB DIMETHYL SULFOXIDE
     Indication: Malignant melanoma stage IV
     Dosage: THERAPY END DATE : NASK
     Dates: start: 20221115
  4. TAFINLAR [Suspect]
     Active Substance: DABRAFENIB MESYLATE
     Indication: Malignant melanoma stage IV
     Dosage: THERAPY END DATE : NASK
     Dates: start: 20221115
  5. OXAZEPAM [Suspect]
     Active Substance: OXAZEPAM
     Indication: Anxiety
     Dosage: FREQUENCY TIME : 1 DAY, THERAPY END DATE : NASK
     Dates: start: 20221125
  6. LOVENOX [Concomitant]
     Active Substance: ENOXAPARIN SODIUM
     Indication: Product used for unknown indication
  7. MACROGOL DISTEARATE [Concomitant]
     Indication: Product used for unknown indication
  8. VALPROATE SODIUM [Concomitant]
     Active Substance: VALPROATE SODIUM
     Indication: Product used for unknown indication

REACTIONS (2)
  - Rash maculo-papular [Not Recovered/Not Resolved]
  - Pyrexia [Not Recovered/Not Resolved]

NARRATIVE: CASE EVENT DATE: 20221130
